FAERS Safety Report 25584257 (Version 2)
Quarter: 2025Q3

REPORT INFORMATION
  Report Type: Spontaneous
  Country: JP (occurrence: JP)
  Receive Date: 20250721
  Receipt Date: 20250808
  Transmission Date: 20251020
  Serious: Yes (Hospitalization, Other)
  Sender: ROCHE
  Company Number: JP-CHUGAI-2025017001

PATIENT
  Age: 75 Year
  Sex: Male
  Weight: 88 kg

DRUGS (7)
  1. AVASTIN [Suspect]
     Active Substance: BEVACIZUMAB
     Indication: Hepatocellular carcinoma
     Dosage: 15 MILLIGRAM/KILOGRAM, ONCE/3WEEKS
     Route: 042
     Dates: start: 20240305, end: 20250430
  2. TECENTRIQ [Suspect]
     Active Substance: ATEZOLIZUMAB
     Indication: Hepatocellular carcinoma
     Dosage: 1200 MILLIGRAM, ONCE/3WEEKS
     Route: 042
     Dates: start: 20240305, end: 20250430
  3. SHAKUYAKUKANZOTO [Concomitant]
     Active Substance: HERBALS
     Route: 065
     Dates: start: 20240222
  4. SODIUM FERROUS CITRATE [Concomitant]
     Active Substance: SODIUM FERROUS CITRATE
     Route: 065
     Dates: start: 20240301
  5. TU-100 [Concomitant]
     Active Substance: ASIAN GINSENG\GINGER\ZANTHOXYLUM PIPERITUM FRUIT PULP
     Route: 065
     Dates: start: 20240305
  6. MAGNESIUM OXIDE [Concomitant]
     Active Substance: MAGNESIUM OXIDE
     Route: 065
     Dates: start: 20240326
  7. AMITIZA [Concomitant]
     Active Substance: LUBIPROSTONE
     Route: 065
     Dates: start: 20240709

REACTIONS (2)
  - Oesophageal varices haemorrhage [Recovered/Resolved]
  - Anaemia [Recovered/Resolved]

NARRATIVE: CASE EVENT DATE: 20250516
